FAERS Safety Report 6735281-2 (Version None)
Quarter: 2010Q2

REPORT INFORMATION
  Report Type: 
  Country: None (occurrence: None)
  Receive Date: 20100519
  Receipt Date: 20100504
  Transmission Date: 20101027
  Serious: Yes (Hospitalization)
  Sender: FDA-Public Use
  Company Number: MPS1-1000279

PATIENT
  Age: 28 Year
  Sex: Male
  Weight: 30 kg

DRUGS (8)
  1. ALDURAZYME [Suspect]
     Indication: MUCOPOLYSACCHARIDOSIS I
     Dosage: 20 MG, 1X/W, INTRAVENOUS
     Route: 042
     Dates: start: 20070103
  2. MESTINON [Concomitant]
  3. REMERON [Concomitant]
  4. PEPCID [Concomitant]
  5. LACTOBACILLUS (LACTOBACILLUS ACIDOPHILUS) [Concomitant]
  6. KEPPRA [Concomitant]
  7. METRONIDAZOLE [Concomitant]
  8. POTASSIUM CHLORIDE [Concomitant]

REACTIONS (5)
  - DEHYDRATION [None]
  - HYPERNATRAEMIA [None]
  - PANCREATITIS [None]
  - PSYCHOTIC DISORDER [None]
  - WEIGHT DECREASED [None]
